FAERS Safety Report 21136778 (Version 1)
Quarter: 2022Q3

REPORT INFORMATION
  Report Type: Spontaneous
  Country: US (occurrence: US)
  Receive Date: 20220727
  Receipt Date: 20220727
  Transmission Date: 20221026
  Serious: No
  Sender: FDA-Public Use
  Company Number: US-BRISTOL-MYERS SQUIBB COMPANY-2022-078738

PATIENT
  Age: 48 Year
  Sex: Male

DRUGS (1)
  1. OPDIVO [Suspect]
     Active Substance: NIVOLUMAB
     Indication: Bone cancer
     Dosage: DOSE : 240MG;     FREQ : ^Q 2 WEEKS^
     Route: 065

REACTIONS (3)
  - Product distribution issue [Unknown]
  - Product temperature excursion issue [Unknown]
  - Intentional product use issue [Unknown]

NARRATIVE: CASE EVENT DATE: 20220715
